FAERS Safety Report 14361799 (Version 1)
Quarter: 2018Q1

REPORT INFORMATION
  Report Type: Spontaneous
  Country: FR (occurrence: FR)
  Receive Date: 20180108
  Receipt Date: 20180108
  Transmission Date: 20180509
  Serious: Yes (Other)
  Sender: FDA-Public Use
  Company Number: FR-CIPLA LTD.-2017FR30432

PATIENT

DRUGS (8)
  1. XARELTO 20 MG, COMPRIME PELLICULE [Concomitant]
     Dosage: UNK
     Route: 065
  2. SPECIAFOLDINE 5 MG, COMPRIME [Concomitant]
     Active Substance: FOLIC ACID
     Dosage: UNK
     Route: 065
  3. RANIPLEX [Concomitant]
     Active Substance: RANITIDINE HYDROCHLORIDE
     Dosage: UNK
     Route: 065
  4. OFLOXACINE [Concomitant]
     Active Substance: OFLOXACIN
     Dosage: UNK
     Route: 065
  5. RISPERIDONE. [Suspect]
     Active Substance: RISPERIDONE
     Indication: BRIEF PSYCHOTIC DISORDER WITH MARKED STRESSORS
     Dosage: UNK
     Route: 048
     Dates: start: 201705, end: 201711
  6. NORMACOL [Concomitant]
     Active Substance: HERBALS\KARAYA GUM
     Dosage: UNK
     Route: 065
  7. SIMVASTATINE [Concomitant]
     Active Substance: SIMVASTATIN
     Dosage: UNK
     Route: 065
  8. LEVOTHYROX 50 MICROGRAMMES, COMPRIME SECABLE [Concomitant]
     Dosage: UNK
     Route: 065

REACTIONS (4)
  - Reduced facial expression [Not Recovered/Not Resolved]
  - Posturing [Not Recovered/Not Resolved]
  - Language disorder [Not Recovered/Not Resolved]
  - Dysarthria [Not Recovered/Not Resolved]

NARRATIVE: CASE EVENT DATE: 20171031
